FAERS Safety Report 10416760 (Version 1)
Quarter: 2014Q3

REPORT INFORMATION
  Report Type: Spontaneous
  Country: US (occurrence: US)
  Receive Date: 20140828
  Receipt Date: 20140828
  Transmission Date: 20150326
  Serious: Yes (Other)
  Sender: FDA-Public Use
  Company Number: US-PFIZER INC-2014237332

PATIENT
  Age: 52 Year
  Sex: Female
  Weight: 72.56 kg

DRUGS (8)
  1. ASPIRIN. [Concomitant]
     Active Substance: ASPIRIN
     Dosage: UNK
  2. DICLOFENAC [Concomitant]
     Active Substance: DICLOFENAC
     Dosage: UNK
  3. LYRICA [Suspect]
     Active Substance: PREGABALIN
     Indication: FIBROMYALGIA
     Dosage: 375 MG, 1X/DAY (BY TAKING ONE CAPSULE OF 75MG DURING THE DAY AND TWO CAPSULES OF 150MG AT NIGHT)
     Route: 048
     Dates: start: 2009, end: 20140731
  4. KEPPRA [Concomitant]
     Active Substance: LEVETIRACETAM
     Dosage: UNK
  5. TYLENOL [Concomitant]
     Active Substance: ACETAMINOPHEN
     Dosage: UNK
  6. DILANTIN [Concomitant]
     Active Substance: PHENYTOIN
     Dosage: UNK
  7. MECLIZINE [Concomitant]
     Active Substance: MECLIZINE\MECLIZINE HYDROCHLORIDE
     Dosage: UNK
  8. VALPROIC ACID. [Concomitant]
     Active Substance: VALPROIC ACID
     Dosage: UNK

REACTIONS (6)
  - Pain [Unknown]
  - Insomnia [Unknown]
  - Fibromyalgia [Unknown]
  - Drug withdrawal syndrome [Unknown]
  - Convulsion [Unknown]
  - Asthenia [Unknown]

NARRATIVE: CASE EVENT DATE: 2014
